FAERS Safety Report 5871352-0 (Version None)
Quarter: 2008Q3

REPORT INFORMATION
  Report Type: 
  Country: None (occurrence: None)
  Receive Date: 20080904
  Receipt Date: 20080904
  Transmission Date: 20090109
  Serious: No
  Sender: FDA-Public Use
  Company Number: None

PATIENT
  Sex: Female
  Weight: 63.05 kg

DRUGS (1)
  1. AGGRENOX [Suspect]
     Indication: ANTICOAGULANT THERAPY
     Dosage: 1 2 PER DAY MOUTH
     Route: 048
     Dates: start: 20080820

REACTIONS (5)
  - ABDOMINAL PAIN UPPER [None]
  - DIARRHOEA [None]
  - FEELING ABNORMAL [None]
  - FREQUENT BOWEL MOVEMENTS [None]
  - MALAISE [None]
